FAERS Safety Report 21076541 (Version 1)
Quarter: 2022Q3

REPORT INFORMATION
  Report Type: Spontaneous
  Country: US (occurrence: US)
  Receive Date: 20220713
  Receipt Date: 20220713
  Transmission Date: 20221026
  Serious: No
  Sender: FDA-Public Use
  Company Number: US-PADAGIS-2022PAD00032

PATIENT

DRUGS (2)
  1. EVAMIST [Suspect]
     Active Substance: ESTRADIOL
     Indication: Hot flush
     Dosage: 2 PUMP PER DAY BUT TAKING ONE PUMP PER DAY
     Route: 065
     Dates: start: 20210501
  2. EVAMIST [Suspect]
     Active Substance: ESTRADIOL
     Indication: Menopause

REACTIONS (1)
  - Incorrect dose administered [Unknown]
